FAERS Safety Report 11845678 (Version 1)
Quarter: 2015Q4

REPORT INFORMATION
  Report Type: Report from Study
  Country: US (occurrence: US)
  Receive Date: 20151217
  Receipt Date: 20151217
  Transmission Date: 20160305
  Serious: No
  Sender: FDA-Public Use
  Company Number: US-CELGENEUS-USA-2015112413

PATIENT
  Sex: Female

DRUGS (3)
  1. THALOMID [Suspect]
     Active Substance: THALIDOMIDE
     Indication: NEOPLASM MALIGNANT
     Route: 048
  2. COUMADIN [Concomitant]
     Active Substance: WARFARIN SODIUM
     Indication: BLOOD DISORDER
     Route: 065
  3. VELCADE [Concomitant]
     Active Substance: BORTEZOMIB
     Indication: NEOPLASM MALIGNANT
     Route: 065

REACTIONS (4)
  - White blood cell count decreased [Unknown]
  - Dyspnoea [Unknown]
  - Fatigue [Unknown]
  - Activities of daily living impaired [Unknown]
